FAERS Safety Report 26123996 (Version 1)
Quarter: 2025Q4

REPORT INFORMATION
  Report Type: Spontaneous
  Country: US (occurrence: US)
  Receive Date: 20251205
  Receipt Date: 20251205
  Transmission Date: 20260117
  Serious: No
  Sender: ABBVIE
  Company Number: US-ABBVIE-6573630

PATIENT
  Age: 43 Year
  Sex: Female
  Weight: 68.492 kg

DRUGS (3)
  1. SKYRIZI [Suspect]
     Active Substance: RISANKIZUMAB-RZAA
     Indication: Crohn^s disease
     Dosage: FORM STRENGTH: 360 MILLIGRAM
     Route: 058
     Dates: start: 202402
  2. SKYRIZI [Suspect]
     Active Substance: RISANKIZUMAB-RZAA
     Indication: Crohn^s disease
     Route: 042
  3. ZEPBOUND [Concomitant]
     Active Substance: TIRZEPATIDE
     Indication: Diabetes mellitus

REACTIONS (4)
  - Injection site papule [Recovering/Resolving]
  - Device issue [Not Recovered/Not Resolved]
  - Injection site induration [Recovering/Resolving]
  - Injection site coldness [Recovered/Resolved]

NARRATIVE: CASE EVENT DATE: 20251202
